FAERS Safety Report 20899410 (Version 1)
Quarter: 2022Q2

REPORT INFORMATION
  Report Type: Spontaneous
  Country: US (occurrence: US)
  Receive Date: 20220601
  Receipt Date: 20220601
  Transmission Date: 20220721
  Serious: No
  Sender: FDA-Public Use
  Company Number: US-PFIZER INC-202200724694

PATIENT
  Age: 13 Year
  Sex: Female
  Weight: 23.77 kg

DRUGS (1)
  1. SOMATROPIN [Suspect]
     Active Substance: SOMATROPIN
     Dosage: 0.6 DF (0.6 INJECTED IN LEFT BUTTOCK)
     Dates: start: 20220512

REACTIONS (3)
  - Crying [Unknown]
  - Illness [Unknown]
  - Rash [Unknown]

NARRATIVE: CASE EVENT DATE: 20220512
